FAERS Safety Report 24749307 (Version 1)
Quarter: 2024Q4

REPORT INFORMATION
  Report Type: Spontaneous
  Country: FR (occurrence: FR)
  Receive Date: 20241218
  Receipt Date: 20241218
  Transmission Date: 20250115
  Serious: Yes (Other)
  Sender: CURIUM PHARMACEUTICALS
  Company Number: None

PATIENT
  Age: 58 Year
  Sex: Female
  Weight: 58 kg

DRUGS (1)
  1. TECHNESCAN PYP [Suspect]
     Active Substance: TECHNETIUM TC-99M PYROPHOSPHATE
     Indication: Radioisotope scan
     Route: 042
     Dates: start: 20241106, end: 20241106

REACTIONS (4)
  - Syncope [Recovered/Resolved]
  - Vomiting [Recovered/Resolved]
  - Abdominal pain [Recovered/Resolved]
  - Faeces soft [Recovered/Resolved]

NARRATIVE: CASE EVENT DATE: 20241106
